FAERS Safety Report 7108699-6 (Version None)
Quarter: 2010Q4

REPORT INFORMATION
  Report Type: 
  Country: None (occurrence: None)
  Receive Date: 20101115
  Receipt Date: 20101115
  Transmission Date: 20110411
  Serious: Yes (Hospitalization)
  Sender: FDA-Public Use
  Company Number: None

PATIENT
  Age: 66 Year
  Sex: Male
  Weight: 117.6 kg

DRUGS (2)
  1. WARFARIN SODIUM [Suspect]
     Indication: ATRIAL FIBRILLATION
     Dosage: 5MG DAILY PO
     Route: 048
     Dates: start: 20101109, end: 20101112
  2. LOVENOX [Suspect]
     Indication: ATRIAL FIBRILLATION
     Dosage: 120MG BID SQ
     Route: 058
     Dates: start: 20101109, end: 20101112

REACTIONS (6)
  - BURNING SENSATION [None]
  - DISCOMFORT [None]
  - DYSPHONIA [None]
  - HAEMATOMA [None]
  - NECK PAIN [None]
  - SNEEZING [None]
